FAERS Safety Report 19375830 (Version 1)
Quarter: 2021Q2

REPORT INFORMATION
  Report Type: Spontaneous
  Country: US (occurrence: US)
  Receive Date: 20210604
  Receipt Date: 20210604
  Transmission Date: 20210717
  Serious: No
  Sender: FDA-Public Use
  Company Number: US-SA-2021SA183544

PATIENT
  Age: 53 Year
  Sex: Male

DRUGS (1)
  1. DUPIXENT [Suspect]
     Active Substance: DUPILUMAB

REACTIONS (5)
  - Inappropriate schedule of product administration [Unknown]
  - Pruritus [Unknown]
  - Condition aggravated [Unknown]
  - Dry skin [Unknown]
  - Skin fissures [Unknown]
